FAERS Safety Report 12375800 (Version 3)
Quarter: 2016Q4

REPORT INFORMATION
  Report Type: Spontaneous
  Country: US (occurrence: US)
  Receive Date: 20160517
  Receipt Date: 20161010
  Transmission Date: 20170207
  Serious: Yes (Hospitalization, Other)
  Sender: FDA-Public Use
  Company Number: US-009507513-1605USA007857

PATIENT
  Sex: Female
  Weight: 99.77 kg

DRUGS (1)
  1. NUVARING [Suspect]
     Active Substance: ETHINYL ESTRADIOL\ETONOGESTREL
     Indication: CONTRACEPTION
     Dosage: UNKNOWN
     Route: 067
     Dates: start: 201402, end: 201405

REACTIONS (5)
  - Deep vein thrombosis [Unknown]
  - Urticaria [Unknown]
  - Drug hypersensitivity [Unknown]
  - Pulmonary embolism [Unknown]
  - Costochondritis [Unknown]

NARRATIVE: CASE EVENT DATE: 201405
